FAERS Safety Report 9923124 (Version 1)
Quarter: 2014Q1

REPORT INFORMATION
  Report Type: Spontaneous
  Country: US (occurrence: US)
  Receive Date: 20140225
  Receipt Date: 20140225
  Transmission Date: 20141002
  Serious: No
  Sender: FDA-Public Use
  Company Number: US-AMGEN-USASP2013069970

PATIENT
  Age: 63 Year
  Sex: Male
  Weight: 55.33 kg

DRUGS (5)
  1. ENBREL [Suspect]
     Indication: PRODUCT USED FOR UNKNOWN INDICATION
     Dosage: 50 MG, 2 TIMES/WK
     Route: 058
  2. VITAMIN D3 [Concomitant]
     Dosage: 1000 UNIT, UNK
  3. FISH OIL [Concomitant]
     Dosage: UNK
  4. VITAMIN E                          /00110501/ [Concomitant]
     Dosage: 1000 UNIT, UNK
  5. PSORIASIN                          /00325301/ [Concomitant]
     Dosage: UNK

REACTIONS (2)
  - Drug ineffective [Unknown]
  - Psoriasis [Unknown]
